FAERS Safety Report 7059627-3 (Version None)
Quarter: 2010Q4

REPORT INFORMATION
  Report Type: 
  Country: None (occurrence: None)
  Receive Date: 20101025
  Receipt Date: 20101012
  Transmission Date: 20110411
  Serious: Yes (Hospitalization, Other)
  Sender: FDA-Public Use
  Company Number: CA-ELI_LILLY_AND_COMPANY-CA201010002481

PATIENT
  Sex: Male

DRUGS (10)
  1. ZYPREXA [Suspect]
     Dosage: UNK, UNKNOWN
     Route: 048
  2. ZYPREXA [Suspect]
     Dosage: 10 MG, DAILY (1/D)
     Route: 048
     Dates: start: 20040714
  3. ZYPREXA [Suspect]
     Dosage: 5 MG, DAILY (1/D)
     Route: 048
     Dates: start: 20041116
  4. ZYPREXA [Suspect]
     Dosage: 5 MG, 3/D
     Route: 048
     Dates: start: 20081224
  5. LITHIUM CARBONATE [Concomitant]
     Dosage: 300 MG, 2/D
     Route: 048
  6. RISPERDAL [Concomitant]
     Dosage: 2 MG, DAILY (1/D)
     Route: 048
  7. NOVOMIX                            /01475801/ [Concomitant]
     Dosage: 20 U, 2/D
     Route: 065
  8. RAMIPRIL [Concomitant]
     Dosage: 2.5 MG, DAILY (1/D)
     Route: 048
  9. BENZTROPINE MESYLATE [Concomitant]
     Dosage: 2 MG, DAILY (1/D)
     Route: 048
  10. OXYCODONE HCL AND ACETAMINOPHEN [Concomitant]
     Dosage: UNK, UNKNOWN
     Route: 065

REACTIONS (9)
  - CHEST PAIN [None]
  - DIABETIC KETOACIDOSIS [None]
  - GLYCOSURIA [None]
  - PANCREATITIS CHRONIC [None]
  - PARAESTHESIA [None]
  - TYPE 1 DIABETES MELLITUS [None]
  - VISION BLURRED [None]
  - VISUAL IMPAIRMENT [None]
  - WEIGHT DECREASED [None]
